FAERS Safety Report 25212348 (Version 1)
Quarter: 2025Q2

REPORT INFORMATION
  Report Type: Spontaneous
  Country: CZ (occurrence: CZ)
  Receive Date: 20250418
  Receipt Date: 20250418
  Transmission Date: 20250716
  Serious: Yes (Other)
  Sender: ASTELLAS
  Company Number: CZ-ASTELLAS-2025-AER-021006

PATIENT
  Age: 65 Year
  Sex: Male

DRUGS (1)
  1. ERLOTINIB [Suspect]
     Active Substance: ERLOTINIB
     Indication: Lung adenocarcinoma
     Route: 050

REACTIONS (2)
  - Skin toxicity [Unknown]
  - Disease progression [Unknown]

NARRATIVE: CASE EVENT DATE: 20200501
